FAERS Safety Report 9538824 (Version 1)
Quarter: 2013Q3

REPORT INFORMATION
  Report Type: Report from Study
  Country: BR (occurrence: BR)
  Receive Date: 20130920
  Receipt Date: 20130920
  Transmission Date: 20140515
  Serious: Yes (Other)
  Sender: FDA-Public Use
  Company Number: PHHY2013BR104316

PATIENT
  Sex: Female

DRUGS (4)
  1. DIOVAN [Suspect]
     Indication: HYPERTENSION
     Dosage: 160 MG, DAILY
     Route: 048
  2. DIOVAN [Suspect]
     Indication: HYPERTENSION
  3. ROSUCOR [Concomitant]
     Indication: CARDIOVASCULAR INSUFFICIENCY
     Dosage: UNK UKN, UNK
  4. FOSTAIR [Concomitant]
     Indication: ASTHMA
     Dosage: 1 UKN, BID

REACTIONS (2)
  - Visual acuity reduced [Not Recovered/Not Resolved]
  - Angina pectoris [Recovering/Resolving]
